FAERS Safety Report 15716976 (Version 2)
Quarter: 2019Q1

REPORT INFORMATION
  Report Type: Spontaneous
  Country: US (occurrence: US)
  Receive Date: 20181213
  Receipt Date: 20190102
  Transmission Date: 20190417
  Serious: No
  Sender: FDA-Public Use
  Company Number: US-PFIZER INC-2018509080

PATIENT
  Age: 74 Year

DRUGS (1)
  1. LYRICA [Suspect]
     Active Substance: PREGABALIN
     Dosage: UNK

REACTIONS (4)
  - Oropharyngeal pain [Unknown]
  - Rhinorrhoea [Unknown]
  - Headache [Unknown]
  - Toothache [Unknown]
